FAERS Safety Report 6402927-8 (Version None)
Quarter: 2009Q4

REPORT INFORMATION
  Report Type: 
  Country: None (occurrence: None)
  Receive Date: 20091014
  Receipt Date: 20091014
  Transmission Date: 20100525
  Serious: No
  Sender: FDA-Public Use
  Company Number: None

PATIENT
  Sex: Female
  Weight: 136.0791 kg

DRUGS (1)
  1. MICARDIS [Suspect]
     Dosage: 80 MG 1 80 12 MG 1

REACTIONS (2)
  - HAEMORRHAGE [None]
  - SKIN ODOUR ABNORMAL [None]
